FAERS Safety Report 24164156 (Version 1)
Quarter: 2024Q3

REPORT INFORMATION
  Report Type: Spontaneous
  Country: NO (occurrence: NO)
  Receive Date: 20240801
  Receipt Date: 20240801
  Transmission Date: 20241017
  Serious: Yes (Hospitalization)
  Sender: TEVA
  Company Number: None

PATIENT
  Age: 59 Year
  Sex: Male

DRUGS (1)
  1. FINGOLIMOD [Suspect]
     Active Substance: FINGOLIMOD
     Indication: Multiple sclerosis
     Dosage: FINGOLIMOD TEVA
     Route: 048
     Dates: start: 20140811, end: 20240712

REACTIONS (1)
  - Renal cell carcinoma stage II [Recovering/Resolving]

NARRATIVE: CASE EVENT DATE: 20240411
